FAERS Safety Report 12510242 (Version 1)
Quarter: 2016Q2

REPORT INFORMATION
  Report Type: Spontaneous
  Country: US (occurrence: US)
  Receive Date: 20160629
  Receipt Date: 20160629
  Transmission Date: 20160815
  Serious: No
  Sender: FDA-Public Use
  Company Number: US-RB-078091-15

PATIENT
  Age: 43 Year
  Sex: Female

DRUGS (1)
  1. MUCINEX DM MAXIMUM STRENGTH [Suspect]
     Active Substance: DEXTROMETHORPHAN HYDROBROMIDE\GUAIFENESIN
     Indication: PRODUCT USED FOR UNKNOWN INDICATION
     Dosage: 2400MG. ,FREQUENCY UNK
     Route: 065
     Dates: start: 20150529

REACTIONS (2)
  - Pruritus [Unknown]
  - Asthenopia [Unknown]

NARRATIVE: CASE EVENT DATE: 20150529
